FAERS Safety Report 8885637 (Version 1)
Quarter: 2012Q4

REPORT INFORMATION
  Report Type: 
  Country: GB (occurrence: GB)
  Receive Date: 20121102
  Receipt Date: 20121102
  Transmission Date: 20130627
  Serious: Yes (Other)
  Sender: FDA-Public Use
  Company Number: GB-UCBSA-069913

PATIENT
  Age: 40 Year
  Sex: Male

DRUGS (3)
  1. KEPPRA [Suspect]
     Indication: EPILEPSY
     Route: 048
     Dates: start: 20110930, end: 20120820
  2. KEPPRA [Suspect]
     Indication: EPILEPSY
     Route: 048
     Dates: start: 20120820, end: 20121002
  3. LAMICTAL [Concomitant]
     Indication: EPILEPSY
     Route: 048

REACTIONS (8)
  - Suicidal ideation [Recovering/Resolving]
  - Personality change [Recovering/Resolving]
  - Paranoia [Recovering/Resolving]
  - Aggression [Recovering/Resolving]
  - Decreased appetite [Recovering/Resolving]
  - Depression [Recovering/Resolving]
  - Emotional disorder [Recovering/Resolving]
  - Affective disorder [Recovering/Resolving]
